FAERS Safety Report 6973695-6 (Version None)
Quarter: 2010Q3

REPORT INFORMATION
  Report Type: 
  Country: None (occurrence: None)
  Receive Date: 20100907
  Receipt Date: 20100826
  Transmission Date: 20110219
  Serious: Yes (Other)
  Sender: FDA-Public Use
  Company Number: DE-GDP-10408193

PATIENT
  Sex: Male
  Weight: 110 kg

DRUGS (3)
  1. METVIX (METHYL AMINOLEVULINATE HYDROCHLORIDE) (16%) [Suspect]
     Indication: BOWEN'S DISEASE
     Dosage: 6 DF 1X WEEK TOPICAL, (1 DF TOPICAL)
     Route: 061
     Dates: start: 20090107, end: 20090206
  2. METVIX (METHYL AMINOLEVULINATE HYDROCHLORIDE) (16%) [Suspect]
     Indication: BOWEN'S DISEASE
     Dosage: 6 DF 1X WEEK TOPICAL, (1 DF TOPICAL)
     Route: 061
     Dates: start: 20100430, end: 20100430
  3. NEBIVOLOL HCL [Concomitant]

REACTIONS (4)
  - DERMATITIS ALLERGIC [None]
  - DERMATITIS CONTACT [None]
  - LICHENOID KERATOSIS [None]
  - PHOTOSENSITIVITY REACTION [None]
